FAERS Safety Report 10780592 (Version 2)
Quarter: 2015Q1

REPORT INFORMATION
  Report Type: Spontaneous
  Country: US (occurrence: US)
  Receive Date: 20150210
  Receipt Date: 20150218
  Transmission Date: 20150721
  Serious: Yes (Other)
  Sender: FDA-Public Use
  Company Number: US-PFIZER INC-2015050823

PATIENT
  Age: 55 Year
  Sex: Male
  Weight: 142 kg

DRUGS (3)
  1. EFFEXOR XR [Suspect]
     Active Substance: VENLAFAXINE HYDROCHLORIDE
     Indication: DEPRESSION
  2. EFFEXOR XR [Suspect]
     Active Substance: VENLAFAXINE HYDROCHLORIDE
     Indication: ANXIETY
     Dosage: 150 MG, DAILY
     Route: 048
     Dates: start: 2004
  3. CLONAZEPAM. [Concomitant]
     Active Substance: CLONAZEPAM
     Dosage: 0.05 MG, AS NEEDED

REACTIONS (7)
  - Drug withdrawal syndrome [Unknown]
  - Mental disorder [Unknown]
  - Confusional state [Not Recovered/Not Resolved]
  - Depression [Unknown]
  - Anxiety [Unknown]
  - Paraesthesia [Not Recovered/Not Resolved]
  - Disorientation [Not Recovered/Not Resolved]
